FAERS Safety Report 23877572 (Version 1)
Quarter: 2024Q2

REPORT INFORMATION
  Report Type: Spontaneous
  Country: US (occurrence: US)
  Receive Date: 20240521
  Receipt Date: 20240521
  Transmission Date: 20240716
  Serious: No
  Sender: FDA-Public Use
  Company Number: ZYD-23-AE-543

PATIENT

DRUGS (1)
  1. TOPIRAMATE [Suspect]
     Active Substance: TOPIRAMATE
     Indication: Product used for unknown indication
     Dosage: 50 GRAM, BID
     Route: 048

REACTIONS (6)
  - Brain fog [Unknown]
  - Aphasia [Unknown]
  - Dizziness [Unknown]
  - Balance disorder [Unknown]
  - Memory impairment [Unknown]
  - Bradykinesia [Unknown]
